FAERS Safety Report 18243230 (Version 3)
Quarter: 2020Q4

REPORT INFORMATION
  Report Type: Report from Study
  Country: CA (occurrence: CA)
  Receive Date: 20200908
  Receipt Date: 20201210
  Transmission Date: 20210113
  Serious: Yes (Other)
  Sender: FDA-Public Use
  Company Number: CA-JNJFOC-20200842685

PATIENT
  Age: 35 Year
  Sex: Male

DRUGS (2)
  1. SIMPONI [Suspect]
     Active Substance: GOLIMUMAB
     Indication: ANKYLOSING SPONDYLITIS
     Route: 041
     Dates: start: 20200304
  2. SIMPONI [Suspect]
     Active Substance: GOLIMUMAB
     Route: 041

REACTIONS (4)
  - Drug ineffective [Unknown]
  - Ankylosing spondylitis [Not Recovered/Not Resolved]
  - Labyrinthitis [Recovered/Resolved]
  - Sinusitis [Recovered/Resolved]
